FAERS Safety Report 5600161-2 (Version None)
Quarter: 2008Q1

REPORT INFORMATION
  Report Type: 
  Country: None (occurrence: None)
  Receive Date: 20080123
  Receipt Date: 20080118
  Transmission Date: 20080703
  Serious: Yes (Life-Threatening, Hospitalization, Other)
  Sender: FDA-Public Use
  Company Number: JP-BRISTOL-MYERS SQUIBB COMPANY-14017321

PATIENT
  Age: 30 Year
  Sex: Male

DRUGS (3)
  1. BARACLUDE [Suspect]
     Indication: HEPATITIS B
     Route: 048
     Dates: start: 20071204, end: 20071207
  2. NEO-MINOPHAGEN C [Concomitant]
     Dates: start: 20071201
  3. ADELAVIN [Concomitant]
     Route: 042
     Dates: start: 20071201

REACTIONS (9)
  - ABDOMINAL DISTENSION [None]
  - ANOREXIA [None]
  - DRUG HYPERSENSITIVITY [None]
  - DYSPHONIA [None]
  - LARYNGEAL OEDEMA [None]
  - MALAISE [None]
  - PYREXIA [None]
  - RASH [None]
  - TRANSAMINASES INCREASED [None]
